FAERS Safety Report 24299482 (Version 1)
Quarter: 2024Q3

REPORT INFORMATION
  Report Type: Spontaneous
  Country: US (occurrence: US)
  Receive Date: 20240909
  Receipt Date: 20240909
  Transmission Date: 20241016
  Serious: No
  Sender: PFIZER
  Company Number: US-PFIZER INC-202400230673

PATIENT
  Age: 34 Year
  Sex: Male
  Weight: 60.78 kg

DRUGS (6)
  1. OXBRYTA [Suspect]
     Active Substance: VOXELOTOR
     Indication: Ocular neoplasm
     Dosage: 500 MG, 3X/DAY
     Route: 048
     Dates: start: 202407
  2. OXBRYTA [Suspect]
     Active Substance: VOXELOTOR
     Dosage: 1500 MG, DAILY
  3. HYDROXYUREA [Concomitant]
     Active Substance: HYDROXYUREA
  4. VITAMIN D NOS [Concomitant]
     Active Substance: CHOLECALCIFEROL\ERGOCALCIFEROL
     Dosage: 125 MG
  5. COMPLEX B [VITAMIN B COMPLEX] [Concomitant]
     Dosage: UNK
  6. FOLIC ACID [Concomitant]
     Active Substance: FOLIC ACID
     Dosage: 5 MG

REACTIONS (4)
  - Haemoglobin increased [Unknown]
  - Pain [Unknown]
  - Intentional product misuse [Unknown]
  - Off label use [Unknown]

NARRATIVE: CASE EVENT DATE: 20240701
